FAERS Safety Report 25225234 (Version 1)
Quarter: 2025Q2

REPORT INFORMATION
  Report Type: Report from Study
  Country: ES (occurrence: ES)
  Receive Date: 20250422
  Receipt Date: 20250422
  Transmission Date: 20250716
  Serious: Yes (Hospitalization)
  Sender: PFIZER
  Company Number: ES-MSNLABS-2025MSNLIT00781

PATIENT
  Age: 54 Year
  Sex: Male

DRUGS (3)
  1. LEVETIRACETAM [Suspect]
     Active Substance: LEVETIRACETAM
     Indication: Epilepsy
  2. LACOSAMIDE [Suspect]
     Active Substance: LACOSAMIDE
     Indication: Epilepsy
  3. VALPROATE [Suspect]
     Active Substance: VALPROIC ACID
     Indication: Epilepsy

REACTIONS (3)
  - Treatment noncompliance [Unknown]
  - Status epilepticus [Unknown]
  - Partial seizures [Unknown]
